FAERS Safety Report 8374616-4 (Version None)
Quarter: 2012Q2

REPORT INFORMATION
  Report Type: 
  Country: None (occurrence: None)
  Receive Date: 20120521
  Receipt Date: 20110401
  Transmission Date: 20120825
  Serious: No
  Sender: FDA-Public Use
  Company Number: US-ASTRAZENECA-2011SE21619

PATIENT
  Sex: Male

DRUGS (4)
  1. TOPROL-XL [Concomitant]
     Dosage: UNKNOWN
  2. PRILOSEC OTC [Suspect]
     Route: 048
     Dates: start: 20110401, end: 20110401
  3. ATACAND [Concomitant]
     Dosage: UNKNOWN
  4. ANTIHYPERTENSIVES [Concomitant]
     Dosage: UNKNOWN

REACTIONS (3)
  - DIZZINESS [None]
  - ABDOMINAL DISCOMFORT [None]
  - MUSCULOSKELETAL STIFFNESS [None]
